FAERS Safety Report 7227238-2 (Version None)
Quarter: 2011Q1

REPORT INFORMATION
  Report Type: 
  Country: None (occurrence: None)
  Receive Date: 20110114
  Receipt Date: 20110106
  Transmission Date: 20110831
  Serious: Yes (Hospitalization, Disabling)
  Sender: FDA-Public Use
  Company Number: A0900456A

PATIENT
  Sex: Female

DRUGS (5)
  1. DARUNAVIR [Concomitant]
     Dosage: 800MG PER DAY
     Route: 065
  2. KIVEXA [Suspect]
     Indication: HIV INFECTION
     Dosage: 1TAB PER DAY
     Route: 048
     Dates: start: 20090204
  3. ATOVAQUONE [Concomitant]
     Dosage: 1500MG PER DAY
     Route: 065
  4. RITONAVIR [Concomitant]
     Dosage: 100MG PER DAY
     Route: 065
  5. AZITHROMYCIN [Concomitant]
     Dosage: 1250MG WEEKLY
     Route: 048

REACTIONS (6)
  - CEREBROVASCULAR ACCIDENT [None]
  - DYSPHAGIA [None]
  - APHASIA [None]
  - ADVERSE EVENT [None]
  - HEMIPARESIS [None]
  - BEDRIDDEN [None]
